FAERS Safety Report 24359972 (Version 1)
Quarter: 2024Q3

REPORT INFORMATION
  Report Type: Spontaneous
  Country: US (occurrence: US)
  Receive Date: 20240925
  Receipt Date: 20240925
  Transmission Date: 20241016
  Serious: Yes (Other)
  Sender: EMCURE
  Company Number: US-AVET LIFESCIENCES LTD-2024-AVET-000332

PATIENT
  Age: 44 Year
  Sex: Male

DRUGS (2)
  1. METOPROLOL [Suspect]
     Active Substance: METOPROLOL
     Indication: Cardiac failure
     Dosage: 150 MG DAILY
  2. sacubitril? valsartan [Concomitant]
     Dosage: UNK

REACTIONS (2)
  - Drug intolerance [Unknown]
  - Condition aggravated [Unknown]
